FAERS Safety Report 7764377-1 (Version None)
Quarter: 2011Q3

REPORT INFORMATION
  Report Type: 
  Country: None (occurrence: None)
  Receive Date: 20110921
  Receipt Date: 20110915
  Transmission Date: 20111222
  Serious: Yes (Other)
  Sender: FDA-Public Use
  Company Number: DE-UCBSA-031198

PATIENT
  Sex: Male
  Weight: 78 kg

DRUGS (3)
  1. MARCUMAR [Concomitant]
     Indication: AORTIC VALVE REPLACEMENT
     Dosage: ACCORDING TO INR
  2. KEPPRA [Suspect]
     Indication: CONVULSION PROPHYLAXIS
     Dates: start: 20100501
  3. KEPPRA [Suspect]
     Dates: end: 20110201

REACTIONS (2)
  - BLOOD CREATINE PHOSPHOKINASE INCREASED [None]
  - FALL [None]
